FAERS Safety Report 9640636 (Version 2)
Quarter: 2014Q1

REPORT INFORMATION
  Report Type: Spontaneous
  Country: FR (occurrence: FR)
  Receive Date: 20131023
  Receipt Date: 20140306
  Transmission Date: 20141002
  Serious: Yes (Congenital Anomaly)
  Sender: FDA-Public Use
  Company Number: FR-PFIZER INC-2013296949

PATIENT
  Sex: 0

DRUGS (4)
  1. ZOLOFT [Suspect]
     Dosage: 50 MG/DAY
     Route: 064
  2. DEPAMIDE [Suspect]
     Dosage: 500 MG, 2X/DAY (MORNING AND EVENING)
     Route: 064
  3. LEXOMIL ROCHE [Suspect]
     Dosage: 1 DF/DAY
     Route: 064
  4. SPECIAFOLDINE [Suspect]
     Dosage: UNK
     Route: 064

REACTIONS (2)
  - Maternal exposure during pregnancy [Unknown]
  - Talipes [Unknown]
